FAERS Safety Report 15188082 (Version 1)
Quarter: 2018Q3

REPORT INFORMATION
  Report Type: Spontaneous
  Country: CH (occurrence: CH)
  Receive Date: 20180724
  Receipt Date: 20180724
  Transmission Date: 20181010
  Serious: Yes (Other)
  Sender: FDA-Public Use
  Company Number: CH-ROCHE-2156380

PATIENT
  Age: 79 Year
  Sex: Male

DRUGS (2)
  1. MABTHERA [Suspect]
     Active Substance: RITUXIMAB
     Indication: SPLENIC MARGINAL ZONE LYMPHOMA
     Route: 042
     Dates: start: 2013, end: 2013
  2. LEUKERAN [Concomitant]
     Active Substance: CHLORAMBUCIL
     Indication: SPLENIC MARGINAL ZONE LYMPHOMA
     Route: 065
     Dates: start: 2013, end: 2013

REACTIONS (2)
  - Splenic marginal zone lymphoma [Not Recovered/Not Resolved]
  - Drug ineffective [Unknown]

NARRATIVE: CASE EVENT DATE: 2018
